FAERS Safety Report 15217948 (Version 5)
Quarter: 2021Q4

REPORT INFORMATION
  Report Type: Report from Study
  Country: US (occurrence: US)
  Receive Date: 20180730
  Receipt Date: 20211214
  Transmission Date: 20220303
  Serious: Yes (Hospitalization)
  Sender: FDA-Public Use
  Company Number: US-AMGEN-USACT2018090608

PATIENT
  Age: 69 Year
  Sex: Male
  Weight: 105.45 kg

DRUGS (19)
  1. EVOLOCUMAB [Suspect]
     Active Substance: EVOLOCUMAB
     Indication: Dyslipidaemia
     Dosage: UNK
     Route: 058
     Dates: start: 20160928
  2. EVOLOCUMAB [Suspect]
     Active Substance: EVOLOCUMAB
     Dosage: UNK
     Route: 058
     Dates: start: 20180807
  3. ATORVASTATIN [Concomitant]
     Active Substance: ATORVASTATIN
     Indication: Dyslipidaemia
     Dosage: 40 MILLIGRAM
     Dates: start: 20160928
  4. ASPIRIN [Concomitant]
     Active Substance: ASPIRIN
     Dosage: 81 MILLIGRAM
     Dates: start: 2004
  5. PLAVIX [Concomitant]
     Active Substance: CLOPIDOGREL BISULFATE
     Dosage: 75 MILLIGRAM
     Dates: start: 201805, end: 201805
  6. BEVESPI AEROSPHERE [Concomitant]
     Active Substance: FORMOTEROL FUMARATE\GLYCOPYRROLATE
     Dosage: 2 UNK
     Dates: start: 201711
  7. ZYRTEC [Concomitant]
     Active Substance: CETIRIZINE HYDROCHLORIDE
     Dosage: 10 MILLIGRAM
     Dates: start: 201805
  8. CALCIUM [Concomitant]
     Active Substance: CALCIUM
     Dosage: 500 MILLIGRAM
     Dates: start: 201805
  9. VITAMIN C [Concomitant]
     Active Substance: ASCORBIC ACID
     Dosage: 1000 MILLIGRAM
     Dates: start: 201805
  10. TYLENOL [Concomitant]
     Active Substance: ACETAMINOPHEN
     Dosage: 650 MILLIGRAM
     Dates: start: 201805
  11. FLONASE [Concomitant]
     Active Substance: FLUTICASONE PROPIONATE
     Dosage: 50 MICROGRAM
     Dates: start: 201805
  12. CIALIS [Concomitant]
     Active Substance: TADALAFIL
     Dosage: 5 MILLIGRAM
     Dates: start: 2012
  13. CITALOPRAM [Concomitant]
     Active Substance: CITALOPRAM HYDROBROMIDE
     Dosage: 10 MILLIGRAM
     Dates: start: 201409
  14. LUMIGAN [Concomitant]
     Active Substance: BIMATOPROST
     Dosage: 1 GTT DROPS
     Dates: start: 2014
  15. ALPHAGAN P [Concomitant]
     Active Substance: BRIMONIDINE TARTRATE
     Dosage: 1 GTT DROPS
     Dates: start: 2014
  16. METOPROLOL [Concomitant]
     Active Substance: METOPROLOL
     Dosage: 50 MILLIGRAM
     Dates: start: 2014
  17. RANEXA [Concomitant]
     Active Substance: RANOLAZINE
     Dosage: 500 MILLIGRAM
     Dates: start: 2009
  18. TESTOSTERONE [Concomitant]
     Active Substance: TESTOSTERONE
     Dosage: 200 MILLIGRAM
     Dates: start: 2012
  19. CLOPIDOGREL [Concomitant]
     Active Substance: CLOPIDOGREL BISULFATE
     Dosage: UNK

REACTIONS (1)
  - Coronary artery disease [Recovered/Resolved]

NARRATIVE: CASE EVENT DATE: 20180507
